FAERS Safety Report 10872151 (Version 1)
Quarter: 2015Q1

REPORT INFORMATION
  Report Type: Spontaneous
  Country: US (occurrence: None)
  Receive Date: 20150223
  Receipt Date: 20150223
  Transmission Date: 20150721
  Serious: Yes (Disabling)
  Sender: FDA-Public Use
  Company Number: None

PATIENT
  Age: 56 Year
  Sex: Female
  Weight: 49.9 kg

DRUGS (12)
  1. BACLOFEN. [Concomitant]
     Active Substance: BACLOFEN
  2. ASPIRIN. [Concomitant]
     Active Substance: ASPIRIN
  3. FISH OIL [Concomitant]
     Active Substance: FISH OIL
  4. TECFIDERA [Suspect]
     Active Substance: DIMETHYL FUMARATE
     Indication: RELAPSING-REMITTING MULTIPLE SCLEROSIS
     Dosage: ONE CAPSULE TWICE DAILY TAKEN BY MOUTH
     Route: 048
     Dates: start: 20130415, end: 20140730
  5. LORAZEPAM. [Concomitant]
     Active Substance: LORAZEPAM
  6. METHADONE [Concomitant]
     Active Substance: METHADONE HYDROCHLORIDE
  7. CALCIUM WITH VITAMIN D [Concomitant]
     Active Substance: CALCIUM\VITAMIN D
  8. VITAMIN D [Concomitant]
     Active Substance: CHOLECALCIFEROL
  9. LYRICA [Concomitant]
     Active Substance: PREGABALIN
  10. ESTROGEN/PROGESTERONE [Concomitant]
     Active Substance: ESTROGENS\PROGESTERONE
  11. SYNTHROID [Concomitant]
     Active Substance: LEVOTHYROXINE SODIUM
  12. LIDODERM [Concomitant]
     Active Substance: LIDOCAINE

REACTIONS (1)
  - Erythromelalgia [None]
